FAERS Safety Report 19400660 (Version 1)
Quarter: 2021Q2

REPORT INFORMATION
  Report Type: Spontaneous
  Country: CN (occurrence: CN)
  Receive Date: 20210610
  Receipt Date: 20210610
  Transmission Date: 20210717
  Serious: Yes (Hospitalization)
  Sender: FDA-Public Use
  Company Number: CN-ASTRAZENECA-2021A515131

PATIENT
  Age: 20051 Day
  Sex: Male
  Weight: 80 kg

DRUGS (1)
  1. BRILINTA [Suspect]
     Active Substance: TICAGRELOR
     Indication: COAGULOPATHY
     Route: 048
     Dates: start: 20191120, end: 20201216

REACTIONS (3)
  - Vomiting [Recovered/Resolved]
  - Gastric haemorrhage [Recovered/Resolved]
  - Nausea [Recovered/Resolved]

NARRATIVE: CASE EVENT DATE: 20191216
